FAERS Safety Report 4638067-8 (Version None)
Quarter: 2005Q2

REPORT INFORMATION
  Report Type: 
  Country: None (occurrence: None)
  Receive Date: 20050415
  Receipt Date: 20050330
  Transmission Date: 20051028
  Serious: Yes (Hospitalization, Other)
  Sender: FDA-Public Use
  Company Number: 2005BI006895

PATIENT
  Age: 44 Year
  Sex: Female

DRUGS (1)
  1. AVONEX [Suspect]
     Indication: MULTIPLE SCLEROSIS
     Dosage: 30 UG;QW; IM
     Route: 030
     Dates: start: 20021001

REACTIONS (6)
  - ABDOMINAL PAIN UPPER [None]
  - GALLBLADDER OPERATION [None]
  - GASTROINTESTINAL DISORDER [None]
  - HERNIA [None]
  - INFECTION [None]
  - ORAL INTAKE REDUCED [None]
